FAERS Safety Report 13390741 (Version 1)
Quarter: 2017Q1

REPORT INFORMATION
  Report Type: Spontaneous
  Country: MX (occurrence: MX)
  Receive Date: 20170331
  Receipt Date: 20170331
  Transmission Date: 20170429
  Serious: Yes (Hospitalization)
  Sender: FDA-Public Use
  Company Number: PHHY2017MX045951

PATIENT
  Age: 62 Year
  Sex: Female

DRUGS (2)
  1. EXEMESTANE. [Concomitant]
     Active Substance: EXEMESTANE
     Indication: BREAST CANCER
     Route: 065
  2. AFINITOR [Suspect]
     Active Substance: EVEROLIMUS
     Indication: BREAST CANCER
     Dosage: 10 MG, UNK
     Route: 065

REACTIONS (5)
  - Encephalopathy [Unknown]
  - Seizure [Unknown]
  - Respiratory disorder [Unknown]
  - Partial seizures [Unknown]
  - Loss of consciousness [Unknown]

NARRATIVE: CASE EVENT DATE: 20170318
